FAERS Safety Report 11245739 (Version 2)
Quarter: 2015Q4

REPORT INFORMATION
  Report Type: Spontaneous
  Country: US (occurrence: US)
  Receive Date: 20150707
  Receipt Date: 20151002
  Transmission Date: 20160304
  Serious: Yes (Hospitalization)
  Sender: FDA-Public Use
  Company Number: US-DSJP-DSU-2015-120638

PATIENT

DRUGS (3)
  1. IRBESARTAN HYDROCHLOROTHIAZIDE [Concomitant]
     Active Substance: HYDROCHLOROTHIAZIDE\IRBESARTAN
     Indication: PRODUCT USED FOR UNKNOWN INDICATION
     Dosage: 150- 12.5 MG, QD
     Dates: start: 200505, end: 201012
  2. METOPROLOL TARTRATE. [Concomitant]
     Active Substance: METOPROLOL TARTRATE
     Indication: PRODUCT USED FOR UNKNOWN INDICATION
     Dosage: 25 MG, QD
     Dates: start: 201306, end: 201308
  3. BENICAR HCT [Suspect]
     Active Substance: HYDROCHLOROTHIAZIDE\OLMESARTAN MEDOXOMIL
     Indication: HYPERTENSION
     Dosage: 40-12.5 MG, QD
     Dates: start: 20091112, end: 20130709

REACTIONS (11)
  - Electrolyte depletion [Unknown]
  - Atrial fibrillation [Unknown]
  - Hypotension [Unknown]
  - Enteritis [Unknown]
  - Gastrointestinal oedema [Unknown]
  - Liver function test abnormal [Unknown]
  - Pancreatic cyst [Not Recovered/Not Resolved]
  - Oedema peripheral [Unknown]
  - Malabsorption [Unknown]
  - Gastrooesophageal reflux disease [Not Recovered/Not Resolved]
  - Acute kidney injury [Unknown]

NARRATIVE: CASE EVENT DATE: 201302
